FAERS Safety Report 25944894 (Version 1)
Quarter: 2025Q4

REPORT INFORMATION
  Report Type: Spontaneous
  Country: US (occurrence: US)
  Receive Date: 20251021
  Receipt Date: 20251021
  Transmission Date: 20260117
  Serious: No
  Sender: Phathom Pharmaceuticals
  Company Number: US-PHATHOM PHARMACEUTICALS INC.-2025PHT02206

PATIENT
  Age: 63 Year
  Sex: Female
  Weight: 67.664 kg

DRUGS (15)
  1. VOQUEZNA [Suspect]
     Active Substance: VONOPRAZAN FUMARATE
     Indication: Gastrooesophageal reflux disease
     Dosage: 20 MG, 1X/DAY
     Route: 048
     Dates: start: 20241002, end: 20250512
  2. ZZZQUIL NIGHTTIME SLEEP-AID [Concomitant]
     Active Substance: DIPHENHYDRAMINE HYDROCHLORIDE
  3. ASPIRIN [Concomitant]
     Active Substance: ASPIRIN
  4. MAGNESIUM GLYCINATE [Concomitant]
     Active Substance: MAGNESIUM GLYCINATE
  5. ZOFRAN [Concomitant]
     Active Substance: ONDANSETRON HYDROCHLORIDE
  6. TIZANIDINE [Concomitant]
     Active Substance: TIZANIDINE
  7. AMOXICILLIN [Concomitant]
     Active Substance: AMOXICILLIN
  8. COENZYME Q10 [Concomitant]
     Active Substance: DIETARY SUPPLEMENT\UBIDECARENONE
  9. MENAQUINONE 6 [Concomitant]
     Active Substance: MENAQUINONE 6
  10. MIRALAX [Concomitant]
     Active Substance: POLYETHYLENE GLYCOL 3350
  11. TUMS [Concomitant]
     Active Substance: CALCIUM CARBONATE
  12. CLONAZEPAM [Concomitant]
     Active Substance: CLONAZEPAM
  13. TRAMADOL [Concomitant]
     Active Substance: TRAMADOL
  14. CELEXA [Concomitant]
     Active Substance: CITALOPRAM HYDROBROMIDE
  15. LEVOTHYROXINE [Concomitant]
     Active Substance: LEVOTHYROXINE

REACTIONS (4)
  - Blood cholesterol increased [Unknown]
  - Blood glucose increased [Unknown]
  - Malaise [Unknown]
  - Hepatic enzyme increased [Unknown]

NARRATIVE: CASE EVENT DATE: 20250512
